FAERS Safety Report 4999986-6 (Version None)
Quarter: 2006Q2

REPORT INFORMATION
  Report Type: 
  Country: None (occurrence: None)
  Receive Date: 20060510
  Receipt Date: 20060510
  Transmission Date: 20061013
  Serious: Yes (Life-Threatening, Hospitalization)
  Sender: FDA-Public Use
  Company Number: None

PATIENT
  Age: 40 Year
  Sex: Male
  Weight: 93 kg

DRUGS (10)
  1. PAROXETINE [Suspect]
     Indication: BIPOLAR DISORDER
     Dosage: 50 MG X 50 TABS PO ONCE
     Route: 048
     Dates: start: 20060307, end: 20060308
  2. CONCERTA [Suspect]
     Indication: ATTENTION DEFICIT/HYPERACTIVITY DISORDER
     Dosage: UNKNOWN X 10-12 TABS ONCE
     Dates: start: 20060308
  3. DILTIAZEM [Concomitant]
  4. DIVALPROEX SODIUM [Concomitant]
  5. BUPROPION [Concomitant]
  6. OLANZAPINE [Concomitant]
  7. LORAZEPAM [Concomitant]
  8. SIMVASTATIN [Concomitant]
  9. CLONAZEPAM [Concomitant]
  10. TEMAZEPAM [Concomitant]

REACTIONS (13)
  - BLOOD CREATINE PHOSPHOKINASE INCREASED [None]
  - CELLULITIS [None]
  - CONVULSION [None]
  - DELUSION [None]
  - HEART RATE INCREASED [None]
  - HYPERREFLEXIA [None]
  - INCORRECT DOSE ADMINISTERED [None]
  - MYOCLONUS [None]
  - PSYCHOMOTOR HYPERACTIVITY [None]
  - SEROTONIN SYNDROME [None]
  - SUICIDE ATTEMPT [None]
  - SUPRAVENTRICULAR TACHYCARDIA [None]
  - TREMOR [None]
